FAERS Safety Report 7906512-8 (Version None)
Quarter: 2011Q4

REPORT INFORMATION
  Report Type: 
  Country: None (occurrence: None)
  Receive Date: 20111110
  Receipt Date: 20111028
  Transmission Date: 20120403
  Serious: Yes (Hospitalization, Other)
  Sender: FDA-Public Use
  Company Number: US-ELI_LILLY_AND_COMPANY-US201111001890

PATIENT
  Sex: Male

DRUGS (1)
  1. FORTEO [Suspect]
     Indication: OSTEOPOROSIS
     Dosage: 20 UG, QD
     Dates: start: 20110501

REACTIONS (6)
  - BACTERIAL DISEASE CARRIER [None]
  - BLOOD CALCIUM DECREASED [None]
  - CONTUSION [None]
  - CARDIAC VALVE VEGETATION [None]
  - ENTEROCOCCAL INFECTION [None]
  - LUMBAR VERTEBRAL FRACTURE [None]
